FAERS Safety Report 15864519 (Version 1)
Quarter: 2019Q1

REPORT INFORMATION
  Report Type: Spontaneous
  Country: US (occurrence: US)
  Receive Date: 20190124
  Receipt Date: 20190124
  Transmission Date: 20190417
  Serious: Yes (Other)
  Sender: FDA-Public Use
  Company Number: US-BAYER-2019-014638

PATIENT
  Sex: Female

DRUGS (1)
  1. COPANLISIB. [Suspect]
     Active Substance: COPANLISIB
     Indication: ENDOMETRIAL CANCER

REACTIONS (3)
  - Endometrial cancer [None]
  - Product use in unapproved indication [None]
  - Off label use [None]
